FAERS Safety Report 17200780 (Version 1)
Quarter: 2019Q4

REPORT INFORMATION
  Report Type: Spontaneous
  Country: GB (occurrence: GB)
  Receive Date: 20191226
  Receipt Date: 20191226
  Transmission Date: 20200122
  Serious: No
  Sender: FDA-Public Use
  Company Number: US MARKSANS PHARMA LTD 276620

PATIENT
  Sex: Male

DRUGS (1)
  1. GUAIFENESIN 100MG/5ML SOLUTION [Suspect]
     Active Substance: GUAIFENESIN
     Route: 048

REACTIONS (1)
  - Discomfort [Unknown]

NARRATIVE: CASE EVENT DATE: 20191021
